FAERS Safety Report 6116329-5 (Version None)
Quarter: 2009Q1

REPORT INFORMATION
  Report Type: 
  Country: None (occurrence: None)
  Receive Date: 20090314
  Receipt Date: 20081208
  Transmission Date: 20090719
  Serious: No
  Sender: FDA-Public Use
  Company Number: US-ABBOTT-08P-163-0491842-00

PATIENT
  Sex: Female
  Weight: 81.72 kg

DRUGS (16)
  1. HUMIRA [Suspect]
     Indication: COLITIS ULCERATIVE
     Route: 058
     Dates: start: 20081203
  2. HUMIRA [Suspect]
     Indication: ARTHRITIS
  3. MESALAZINE [Concomitant]
     Indication: COLITIS ULCERATIVE
  4. PAROXETINE HYDROCHLORIDE [Concomitant]
     Indication: DEPRESSION
  5. PAROXETINE HYDROCHLORIDE [Concomitant]
     Indication: ANXIETY
  6. TECHWIN [Concomitant]
     Indication: ARTHRITIS
  7. METFORMIN HCL [Concomitant]
     Indication: DIABETES MELLITUS
  8. PRAVASTATIN [Concomitant]
     Indication: BLOOD CHOLESTEROL INCREASED
  9. NORTRIPTYLINE HCL [Concomitant]
     Indication: SLEEP DISORDER THERAPY
  10. PRINZIDE [Concomitant]
     Indication: HYPERTENSION
  11. ACETYLSALICYLIC ACID [Concomitant]
     Indication: DRUG USE FOR UNKNOWN INDICATION
  12. OMEPRAZOLE MAGNESIUM [Concomitant]
     Indication: DRUG USE FOR UNKNOWN INDICATION
  13. CALCIUM GLUCONATE [Concomitant]
     Indication: ROUTINE HEALTH MAINTENANCE
  14. VIGRAN [Concomitant]
     Indication: ROUTINE HEALTH MAINTENANCE
  15. GLUCOSAMINE [Concomitant]
     Indication: ROUTINE HEALTH MAINTENANCE
  16. FISH OIL [Concomitant]
     Indication: ROUTINE HEALTH MAINTENANCE

REACTIONS (2)
  - INJECTION SITE HAEMATOMA [None]
  - INJECTION SITE IRRITATION [None]
